FAERS Safety Report 14920981 (Version 2)
Quarter: 2018Q2

REPORT INFORMATION
  Report Type: Spontaneous
  Country: US (occurrence: US)
  Receive Date: 20180521
  Receipt Date: 20180529
  Transmission Date: 20180711
  Serious: No
  Sender: FDA-Public Use
  Company Number: US-009507513-1805USA008722

PATIENT
  Age: 17 Year
  Sex: Female
  Weight: 50.4 kg

DRUGS (1)
  1. NEXPLANON [Suspect]
     Active Substance: ETONOGESTREL
     Dosage: 1 DF, UNK
     Route: 059
     Dates: start: 20180517

REACTIONS (3)
  - Device deployment issue [Recovered/Resolved]
  - Complication of device insertion [Recovered/Resolved]
  - No adverse event [Unknown]

NARRATIVE: CASE EVENT DATE: 20180517
